FAERS Safety Report 17585403 (Version 1)
Quarter: 2020Q1

REPORT INFORMATION
  Report Type: Spontaneous
  Country: US (occurrence: US)
  Receive Date: 20200324
  Receipt Date: 20200324
  Transmission Date: 20200409
  Serious: No
  Sender: FDA-Public Use
  Company Number: None

PATIENT
  Sex: Female

DRUGS (18)
  1. COMBIGAN [Concomitant]
     Active Substance: BRIMONIDINE TARTRATE\TIMOLOL MALEATE
  2. DIAZEPAM. [Concomitant]
     Active Substance: DIAZEPAM
  3. OLD HYPERTEN NEC-DELIVER [Concomitant]
  4. OTHER RESPIRATORY DISORDERS [Concomitant]
  5. STEROTYPED MOVEMENT DISORDERS [Concomitant]
  6. CYCLOBENZAPR [Concomitant]
     Active Substance: CYCLOBENZAPRINE
  7. FLUTICASONE. [Concomitant]
     Active Substance: FLUTICASONE
  8. HYPERLIPIDEMIA [Concomitant]
  9. TREMOR [Concomitant]
  10. TYPE 2 DIABETES MELLITUS [Concomitant]
  11. UPPER RESP DIS NEC/NOS [Concomitant]
  12. LIVER DISEASE [Concomitant]
  13. OTHER DISORDERS OF EXTERNAL EAR [Concomitant]
  14. AMLOD/OLMESA [Concomitant]
  15. ATORVASTATIN [Concomitant]
     Active Substance: ATORVASTATIN
  16. CETIRIZINE [Concomitant]
     Active Substance: CETIRIZINE HYDROCHLORIDE
  17. OCALIVA [Suspect]
     Active Substance: OBETICHOLIC ACID
     Indication: PRIMARY BILIARY CHOLANGITIS
     Dosage: ?          OTHER DOSE:1 TAB;?
     Route: 048
     Dates: start: 20190607
  18. RHEUMATOID ARTHRITIS WITH RHEUMATOID FACTOR [Concomitant]

REACTIONS (2)
  - Hypersensitivity [None]
  - Breast cancer [None]
